FAERS Safety Report 9347093 (Version 1)
Quarter: 2013Q2

REPORT INFORMATION
  Report Type: Spontaneous
  Country: JP (occurrence: JP)
  Receive Date: 20130613
  Receipt Date: 20130613
  Transmission Date: 20140414
  Serious: Yes (Hospitalization)
  Sender: FDA-Public Use
  Company Number: JP-GLAXOSMITHKLINE-B0898016A

PATIENT
  Age: 18 Year
  Sex: Male

DRUGS (2)
  1. FLUTIDE DISKUS [Suspect]
     Indication: ASTHMA
     Route: 045
  2. CELESTAMINE [Concomitant]
     Indication: DERMATITIS ATOPIC
     Route: 048
     Dates: start: 200910

REACTIONS (10)
  - Nocardiosis [Recovering/Resolving]
  - Pneumonia pneumococcal [Unknown]
  - Hypoxia [Recovering/Resolving]
  - Pyrexia [Recovered/Resolved]
  - Malaise [Unknown]
  - Lung infiltration [Recovering/Resolving]
  - Drug eruption [Unknown]
  - Hepatic function abnormal [Unknown]
  - Decreased appetite [Unknown]
  - Upper respiratory tract infection [Unknown]
